FAERS Safety Report 6626259-8 (Version None)
Quarter: 2010Q1

REPORT INFORMATION
  Report Type: 
  Country: None (occurrence: None)
  Receive Date: 20100309
  Receipt Date: 20100309
  Transmission Date: 20100710
  Serious: Yes (Hospitalization)
  Sender: FDA-Public Use
  Company Number: None

PATIENT
  Sex: Female
  Weight: 65.7716 kg

DRUGS (1)
  1. TAMIFLU [Suspect]

REACTIONS (7)
  - ANXIETY [None]
  - CHEST PAIN [None]
  - DISTURBANCE IN ATTENTION [None]
  - EXTRASYSTOLES [None]
  - INSOMNIA [None]
  - PALPITATIONS [None]
  - PARAESTHESIA [None]
